FAERS Safety Report 8217457-0 (Version None)
Quarter: 2012Q1

REPORT INFORMATION
  Report Type: 
  Country: None (occurrence: None)
  Receive Date: 20120315
  Receipt Date: 20120302
  Transmission Date: 20120608
  Serious: Yes (Hospitalization)
  Sender: FDA-Public Use
  Company Number: UTC-015112

PATIENT
  Age: 77 Year
  Sex: Female
  Weight: 85 kg

DRUGS (1)
  1. TYVASO [Suspect]
     Dosage: 72 MCG (18 MCG,4 IN 1 D),INHALATION
     Route: 055
     Dates: start: 20120127

REACTIONS (2)
  - HAEMODIALYSIS COMPLICATION [None]
  - FLUID OVERLOAD [None]
